FAERS Safety Report 13010296 (Version 1)
Quarter: 2016Q4

REPORT INFORMATION
  Report Type: Spontaneous
  Country: US (occurrence: US)
  Receive Date: 20161207
  Receipt Date: 20161207
  Transmission Date: 20170207
  Serious: No
  Sender: FDA-Public Use
  Company Number: None

PATIENT
  Age: 50 Year
  Sex: Female
  Weight: 54 kg

DRUGS (8)
  1. XARELTO [Concomitant]
     Active Substance: RIVAROXABAN
  2. NORCO [Concomitant]
     Active Substance: ACETAMINOPHEN\HYDROCODONE BITARTRATE
  3. GLUTAMINE [Concomitant]
     Active Substance: GLUTAMINE
  4. CYMBALTA [Concomitant]
     Active Substance: DULOXETINE HYDROCHLORIDE
  5. ARMOUR THYROID [Concomitant]
     Active Substance: THYROID, PORCINE
  6. KETOROLAC [Suspect]
     Active Substance: KETOROLAC\KETOROLAC TROMETHAMINE
     Indication: NECK PAIN
     Dosage: ?          QUANTITY:1 TABLET(S); EVERY 6 HOURS?
     Route: 048
     Dates: start: 20161024, end: 20161025
  7. DIAZEPAM. [Concomitant]
     Active Substance: DIAZEPAM
  8. RELIZEN [Concomitant]

REACTIONS (2)
  - Flatulence [None]
  - Abdominal pain [None]

NARRATIVE: CASE EVENT DATE: 20161024
